FAERS Safety Report 15585857 (Version 10)
Quarter: 2024Q1

REPORT INFORMATION
  Report Type: Spontaneous
  Country: US (occurrence: US)
  Receive Date: 20181105
  Receipt Date: 20240125
  Transmission Date: 20240410
  Serious: Yes (Other)
  Sender: FDA-Public Use
  Company Number: US-PFIZER INC-2018450091

PATIENT
  Age: 76 Year
  Sex: Female

DRUGS (1)
  1. XELJANZ XR [Suspect]
     Active Substance: TOFACITINIB CITRATE
     Dosage: 11 MG, 1X/DAY
     Route: 048

REACTIONS (10)
  - Spinal fracture [Unknown]
  - Dental operation [Unknown]
  - Drug dependence [Unknown]
  - Confusional state [Not Recovered/Not Resolved]
  - Anxiety [Unknown]
  - Hair disorder [Unknown]
  - Nail disorder [Unknown]
  - Stress [Unknown]
  - Skin disorder [Unknown]
  - Head discomfort [Unknown]

NARRATIVE: CASE EVENT DATE: 20180101
